FAERS Safety Report 5223808-1 (Version None)
Quarter: 2007Q1

REPORT INFORMATION
  Report Type: 
  Country: None (occurrence: None)
  Receive Date: 20070125
  Receipt Date: 20070112
  Transmission Date: 20070707
  Serious: Yes (Other)
  Sender: FDA-Public Use
  Company Number: HQWYE274112JAN07

PATIENT
  Age: 64 Year
  Sex: Male

DRUGS (4)
  1. PANTOPRAZOLE SODIUM [Suspect]
     Indication: HELICOBACTER INFECTION
     Dosage: 2 DAY 3 DF ORAL
     Route: 048
     Dates: start: 20050418, end: 20050427
  2. AMOXICILLIN [Suspect]
     Indication: HELICOBACTER INFECTION
     Dosage: 2 DAY 3 DF ORAL
     Route: 048
     Dates: start: 20050418, end: 20050427
  3. CLARITHROMYCIN [Suspect]
     Indication: HELICOBACTER INFECTION
     Dosage: 2 DAY  3 DF ORAL
     Route: 048
     Dates: start: 20050418, end: 20050427
  4. BISOPROLOL FUMARATE [Concomitant]

REACTIONS (10)
  - CONFUSIONAL STATE [None]
  - DIZZINESS [None]
  - DYSGEUSIA [None]
  - ERUCTATION [None]
  - HEADACHE [None]
  - MEMORY IMPAIRMENT [None]
  - MUSCULOSKELETAL STIFFNESS [None]
  - PAIN OF SKIN [None]
  - STOMACH DISCOMFORT [None]
  - VISION BLURRED [None]
